FAERS Safety Report 10169386 (Version 1)
Quarter: 2014Q2

REPORT INFORMATION
  Report Type: Spontaneous
  Country: JP (occurrence: JP)
  Receive Date: 20140513
  Receipt Date: 20140513
  Transmission Date: 20141212
  Serious: Yes (Death)
  Sender: FDA-Public Use
  Company Number: JP-MALLINCKRODT-T201402131

PATIENT
  Age: 76 Year
  Sex: Male
  Weight: 55 kg

DRUGS (14)
  1. METHADONE [Suspect]
     Indication: CANCER PAIN
     Dosage: 5 MG, (15 MG DAILY DOSE)
     Route: 048
     Dates: start: 20130913, end: 20140131
  2. METHADONE [Suspect]
     Dosage: 5 MG, (10 MG DAILY DOSE)
     Route: 048
     Dates: start: 20140201, end: 20140306
  3. RISPERDAL [Suspect]
     Indication: DELIRIUM
     Dosage: 0.5 MG DAILY DOSE
     Route: 048
     Dates: start: 20140124, end: 20140306
  4. NEXIUM [Concomitant]
     Dosage: 20 MG, UNK
     Route: 048
     Dates: end: 20131021
  5. MAGMITT [Concomitant]
     Dosage: 990 MG, UNK
     Route: 048
  6. CALONAL [Concomitant]
     Dosage: 1200 MG, UNK
     Route: 048
     Dates: end: 20130924
  7. CELECOX [Concomitant]
     Dosage: 200 MG, UNK
     Dates: end: 20130919
  8. GEMZAR [Concomitant]
     Dosage: 1600 MG, UNK
     Route: 051
     Dates: start: 20130904, end: 20131017
  9. PURSENNID [Concomitant]
     Dosage: 24 MG, UNK
     Route: 048
     Dates: start: 20130926, end: 20140306
  10. TS-1 [Concomitant]
     Dosage: 100 MG, UNK
     Route: 048
     Dates: start: 20131031, end: 20131114
  11. TS-1 [Concomitant]
     Dosage: 100 MG, UNK
     Route: 048
     Dates: start: 20131121, end: 20131205
  12. TS-1 [Concomitant]
     Dosage: 100 MG, UNK
     Route: 048
     Dates: start: 20131212, end: 20131226
  13. TS-1 [Concomitant]
     Dosage: 100 MG, UNK
     Route: 048
     Dates: start: 20140107, end: 20140121
  14. NAUZELIN [Concomitant]
     Dosage: 30 MG, UNK
     Route: 048
     Dates: start: 20130926, end: 20140306

REACTIONS (3)
  - Pancreatic carcinoma [Fatal]
  - Delirium [Not Recovered/Not Resolved]
  - Somnolence [Not Recovered/Not Resolved]
